FAERS Safety Report 8612362 (Version 2)
Quarter: 2012Q4

REPORT INFORMATION
  Report Type: 
  Country: JP (occurrence: JP)
  Receive Date: 20120613
  Receipt Date: 20120911
  Transmission Date: 20130627
  Serious: Yes (Hospitalization)
  Sender: FDA-Public Use
  Company Number: JP-EISAI INC-E7389-02553-SPO-JP

PATIENT
  Age: 75 Year
  Sex: Female
  Weight: 40 kg

DRUGS (8)
  1. HALAVEN [Suspect]
     Indication: BREAST CANCER RECURRENT
     Route: 041
     Dates: start: 20111122, end: 20120219
  2. WARFARIN [Concomitant]
     Indication: CEREBROVASCULAR ACCIDENT PROPHYLAXIS
     Route: 048
  3. MIYA-BM [Concomitant]
     Route: 048
  4. GASMOTIN [Concomitant]
     Indication: GASTRITIS
     Route: 048
  5. BLOPRESS [Concomitant]
     Indication: HYPERTENSION
     Route: 048
  6. GOODMIN [Concomitant]
     Indication: INSOMNIA
     Route: 048
  7. MARZULENE-S [Concomitant]
     Indication: GASTRITIS
     Route: 048
  8. TAKEPRON [Concomitant]
     Route: 048

REACTIONS (2)
  - Influenza [Recovered/Resolved]
  - Metastases to bone [None]
